FAERS Safety Report 23851549 (Version 3)
Quarter: 2024Q2

REPORT INFORMATION
  Report Type: Report from Study
  Country: US (occurrence: US)
  Receive Date: 20240514
  Receipt Date: 20240523
  Transmission Date: 20240715
  Serious: Yes (Other)
  Sender: FDA-Public Use
  Company Number: US-JNJFOC-20240510138

PATIENT
  Sex: Male

DRUGS (1)
  1. TREMFYA [Suspect]
     Active Substance: GUSELKUMAB
     Indication: Product used for unknown indication
     Route: 065
     Dates: start: 202310

REACTIONS (10)
  - Pneumonia [Recovering/Resolving]
  - Syncope [Unknown]
  - Device use issue [Unknown]
  - COVID-19 [Unknown]
  - Dizziness [Unknown]
  - Decreased immune responsiveness [Unknown]
  - Anaemia [Unknown]
  - Pharyngeal swelling [Recovering/Resolving]
  - Bronchitis [Recovering/Resolving]
  - Hyperventilation [Unknown]

NARRATIVE: CASE EVENT DATE: 20231224
